FAERS Safety Report 5662744-3 (Version None)
Quarter: 2008Q1

REPORT INFORMATION
  Report Type: 
  Country: None (occurrence: None)
  Receive Date: 20080311
  Receipt Date: 20080311
  Transmission Date: 20080703
  Serious: No
  Sender: FDA-Public Use
  Company Number: None

PATIENT

DRUGS (7)
  1. HALDOL [Suspect]
  2. PAXIL [Suspect]
  3. GEODON [Suspect]
  4. ZYPREXA [Suspect]
  5. DEPAKOTE [Suspect]
  6. LITHIUM CARBONATE [Suspect]
  7. RESIPDAL CONTRA [Suspect]

REACTIONS (9)
  - ARTHRITIS [None]
  - DEMENTIA [None]
  - HEART RATE IRREGULAR [None]
  - LOSS OF EMPLOYMENT [None]
  - SCIATICA [None]
  - SENSORY LOSS [None]
  - TARDIVE DYSKINESIA [None]
  - THINKING ABNORMAL [None]
  - UNEQUAL LIMB LENGTH [None]
